FAERS Safety Report 4704409-8 (Version None)
Quarter: 2005Q2

REPORT INFORMATION
  Report Type: 
  Country: None (occurrence: None)
  Receive Date: 20050630
  Receipt Date: 20050620
  Transmission Date: 20051028
  Serious: Yes (Hospitalization)
  Sender: FDA-Public Use
  Company Number: FR-GLAXOSMITHKLINE-B0385280A

PATIENT
  Age: 81 Year
  Sex: Female

DRUGS (6)
  1. DEROXAT [Suspect]
     Indication: ILL-DEFINED DISORDER
     Dosage: 20MG PER DAY
     Route: 048
     Dates: start: 20030615, end: 20050502
  2. COVERSYL [Suspect]
     Route: 048
     Dates: start: 20041015, end: 20050527
  3. OMEPRAZOLE [Suspect]
     Dosage: 20MG PER DAY
     Route: 048
     Dates: start: 20030615, end: 20050502
  4. PRAXILENE [Suspect]
     Dosage: 200MG PER DAY
     Route: 048
     Dates: start: 20030615, end: 20050502
  5. CACIT VITAMINE D3 [Suspect]
     Route: 048
     Dates: start: 20030615, end: 20050502
  6. SINTROM [Concomitant]
     Dates: start: 20000101

REACTIONS (4)
  - DERMATITIS BULLOUS [None]
  - PEMPHIGOID [None]
  - PRURITUS [None]
  - RASH VESICULAR [None]
